FAERS Safety Report 6831972-3 (Version None)
Quarter: 2010Q3

REPORT INFORMATION
  Report Type: 
  Country: None (occurrence: None)
  Receive Date: 20100712
  Receipt Date: 20090826
  Transmission Date: 20110219
  Serious: No
  Sender: FDA-Public Use
  Company Number: US-TYCO HEALTHCARE/MALLINCKRODT-T200901590

PATIENT
  Sex: Male
  Weight: 86.168 kg

DRUGS (4)
  1. OXYCODONE HCL AND ACETAMINOPHEN [Suspect]
     Indication: BACK PAIN
     Dosage: 1 Q 6H
     Route: 048
     Dates: start: 20090817, end: 20090820
  2. LEVOXYL [Concomitant]
     Indication: HYPOTHYROIDISM
     Dosage: 175 UG, QD
     Route: 048
  3. HYDROCHLOROTHIAZIDE [Concomitant]
     Indication: HYPERTENSION
     Dosage: 12.5 MG, QD
     Route: 048
  4. ULTRAM [Concomitant]
     Indication: PAIN IN EXTREMITY
     Dosage: 50 MG, QD
     Route: 048

REACTIONS (2)
  - DRUG INEFFECTIVE [None]
  - PRODUCT SUBSTITUTION ISSUE [None]
